FAERS Safety Report 5754703-7 (Version None)
Quarter: 2008Q2

REPORT INFORMATION
  Report Type: 
  Country: None (occurrence: None)
  Receive Date: 20080530
  Receipt Date: 20080519
  Transmission Date: 20081010
  Serious: Yes (Other)
  Sender: FDA-Public Use
  Company Number: US-PFIZER INC-2008044182

PATIENT
  Sex: Female
  Weight: 81.6 kg

DRUGS (11)
  1. CHANTIX [Suspect]
     Indication: SMOKING CESSATION THERAPY
     Route: 048
  2. CARVEDILOL [Suspect]
     Indication: CARDIAC DISORDER
  3. METFORMIN HCL [Concomitant]
  4. GEMFIBROZIL [Concomitant]
  5. COMBIVENT [Concomitant]
     Route: 055
  6. LISINOPRIL [Concomitant]
  7. HYDROCHLOROTHIAZIDE [Concomitant]
  8. VALTREX [Concomitant]
  9. SPIRIVA [Concomitant]
  10. ALPRAZOLAM [Concomitant]
  11. CYCLOBENZAPRINE HCL [Concomitant]

REACTIONS (3)
  - IRRITABILITY [None]
  - MOOD ALTERED [None]
  - VOMITING [None]
